FAERS Safety Report 4596320-0 (Version None)
Quarter: 2005Q1

REPORT INFORMATION
  Report Type: 
  Country: None (occurrence: None)
  Receive Date: 20050228
  Receipt Date: 20050211
  Transmission Date: 20050727
  Serious: Yes (Hospitalization)
  Sender: FDA-Public Use
  Company Number: 2004AP05697

PATIENT
  Age: 8 Year
  Sex: Male
  Weight: 25.8 kg

DRUGS (1)
  1. MEROPEN [Suspect]
     Indication: URINARY TRACT INFECTION
     Dosage: 300 MG DAILY IVD
     Route: 023
     Dates: start: 20040929, end: 20040929

REACTIONS (1)
  - ANAPHYLACTIC REACTION [None]
